FAERS Safety Report 23576433 (Version 3)
Quarter: 2024Q2

REPORT INFORMATION
  Report Type: Spontaneous
  Country: US (occurrence: US)
  Receive Date: 20240228
  Receipt Date: 20240426
  Transmission Date: 20240716
  Serious: No
  Sender: FDA-Public Use
  Company Number: US-PFIZER INC-202400051340

PATIENT
  Age: 40 Year
  Sex: Female
  Weight: 76.66 kg

DRUGS (3)
  1. ZIRABEV [Suspect]
     Active Substance: BEVACIZUMAB-BVZR
     Indication: HER2 positive cervix cancer
     Dosage: 15MG/KG (1100MG IV OVER 30 MINUTES) ONCE EVERY THREE WEEKS
     Route: 042
     Dates: start: 202210
  2. ZIRABEV [Suspect]
     Active Substance: BEVACIZUMAB-BVZR
     Indication: Adrenal gland cancer
  3. HERCEPTIN [Suspect]
     Active Substance: TRASTUZUMAB
     Dosage: 6MG/KG (443MG IV OVER 30 MINUTES) ONCE EVERY THREE WEEKS
     Route: 042
     Dates: start: 202210

REACTIONS (2)
  - Protein urine present [Not Recovered/Not Resolved]
  - Off label use [Unknown]

NARRATIVE: CASE EVENT DATE: 20221001
